FAERS Safety Report 7229487-6 (Version None)
Quarter: 2011Q1

REPORT INFORMATION
  Report Type: 
  Country: None (occurrence: None)
  Receive Date: 20110117
  Receipt Date: 20100115
  Transmission Date: 20110831
  Serious: No
  Sender: FDA-Public Use
  Company Number: US-TYCO HEALTHCARE/MALLINCKRODT-T201000347

PATIENT
  Sex: Male
  Weight: 117.91 kg

DRUGS (3)
  1. OPTIRAY 350 [Suspect]
     Indication: ANGIOGRAM
     Dosage: 80 ML, SINGLE
     Route: 042
     Dates: start: 20100107, end: 20100107
  2. LOVAZA [Concomitant]
     Dosage: UNK
  3. CRESTOR [Concomitant]
     Dosage: UNK

REACTIONS (2)
  - RASH [None]
  - URTICARIA [None]
